FAERS Safety Report 6603621-0 (Version None)
Quarter: 2010Q1

REPORT INFORMATION
  Report Type: 
  Country: None (occurrence: None)
  Receive Date: 20100226
  Receipt Date: 20091130
  Transmission Date: 20100710
  Serious: No
  Sender: FDA-Public Use
  Company Number: A0833240A

PATIENT
  Sex: Female

DRUGS (4)
  1. VALTREX [Suspect]
     Route: 048
  2. PROTOPIC [Suspect]
  3. DESONIDE [Suspect]
  4. UNSPECIFIED MEDICATION [Suspect]

REACTIONS (1)
  - PRURITUS [None]
